FAERS Safety Report 7721381-7 (Version None)
Quarter: 2011Q3

REPORT INFORMATION
  Report Type: 
  Country: None (occurrence: None)
  Receive Date: 20110831
  Receipt Date: 20110817
  Transmission Date: 20111222
  Serious: Yes (Hospitalization, Other)
  Sender: FDA-Public Use
  Company Number: US-ROCHE-779596

PATIENT
  Sex: Male
  Weight: 83.9 kg

DRUGS (2)
  1. ACCUTANE [Suspect]
     Route: 048
     Dates: start: 20000816, end: 20010102
  2. ACCUTANE [Suspect]
     Indication: ACNE
     Route: 048
     Dates: start: 19960724, end: 19960820

REACTIONS (13)
  - STRESS [None]
  - INFLAMMATORY BOWEL DISEASE [None]
  - ANAL POLYP [None]
  - DRY SKIN [None]
  - LIP DRY [None]
  - CROHN'S DISEASE [None]
  - IRRITABLE BOWEL SYNDROME [None]
  - PROSTATITIS [None]
  - COLONIC POLYP [None]
  - COLITIS ULCERATIVE [None]
  - DRY EYE [None]
  - HEADACHE [None]
  - VITREOUS FLOATERS [None]
